FAERS Safety Report 5852650-3 (Version None)
Quarter: 2008Q3

REPORT INFORMATION
  Report Type: 
  Country: None (occurrence: None)
  Receive Date: 20080821
  Receipt Date: 20080814
  Transmission Date: 20090109
  Serious: Yes (Hospitalization)
  Sender: FDA-Public Use
  Company Number: B0532948A

PATIENT
  Age: 70 Year
  Sex: Female

DRUGS (3)
  1. VALTREX [Suspect]
     Indication: HERPES ZOSTER
     Dosage: 3UNIT PER DAY
     Route: 048
     Dates: start: 20080806, end: 20080806
  2. ZOVIRAX [Suspect]
     Indication: DRUG USE FOR UNKNOWN INDICATION
     Route: 042
  3. XELODA [Concomitant]
     Route: 048
     Dates: start: 20080807, end: 20080807

REACTIONS (2)
  - ADVERSE EVENT [None]
  - HEADACHE [None]
